FAERS Safety Report 22394379 (Version 1)
Quarter: 2023Q2

REPORT INFORMATION
  Report Type: Report from Study
  Country: US (occurrence: US)
  Receive Date: 20230601
  Receipt Date: 20230601
  Transmission Date: 20230721
  Serious: No
  Sender: FDA-Public Use
  Company Number: US-BIOVITRUM-2023-US-009285

PATIENT
  Age: 70 Year
  Sex: Male

DRUGS (1)
  1. DOPTELET [Suspect]
     Active Substance: AVATROMBOPAG MALEATE
     Indication: Product used for unknown indication
     Dosage: 40 MG ON MONDAY, WEDNESDAY AND FRIDAY AND 20 MG ON THE OTHER DAYS
     Route: 048

REACTIONS (2)
  - Platelet count decreased [Unknown]
  - Drug ineffective [Unknown]
